FAERS Safety Report 6768134-4 (Version None)
Quarter: 2010Q2

REPORT INFORMATION
  Report Type: 
  Country: None (occurrence: None)
  Receive Date: 20100614
  Receipt Date: 20100607
  Transmission Date: 20101027
  Serious: Yes (Hospitalization)
  Sender: FDA-Public Use
  Company Number: US-ASTRAZENECA-2010SE26495

PATIENT
  Sex: Female

DRUGS (2)
  1. ARIMIDEX [Suspect]
     Indication: BREAST CANCER
     Route: 048
  2. TAMOXIFEN [Suspect]
     Indication: BREAST CANCER

REACTIONS (3)
  - ARTHRALGIA [None]
  - HIP ARTHROPLASTY [None]
  - VAGINAL DISORDER [None]
